FAERS Safety Report 5720672-9 (Version None)
Quarter: 2008Q2

REPORT INFORMATION
  Report Type: 
  Country: None (occurrence: None)
  Receive Date: 20080425
  Receipt Date: 20080425
  Transmission Date: 20081010
  Serious: Yes (Hospitalization)
  Sender: FDA-Public Use
  Company Number: None

PATIENT
  Age: 14 Year
  Sex: Male
  Weight: 43.6 kg

DRUGS (3)
  1. MONTELUKAST SODIUM [Suspect]
     Indication: ASTHMA
     Dosage: 5 MG ONCE DAILY PO
     Route: 048
  2. IBUPROFEN TABLETS [Suspect]
  3. IBUPROFEN TABLETS [Suspect]

REACTIONS (2)
  - INTENTIONAL OVERDOSE [None]
  - REFUSAL OF TREATMENT BY RELATIVE [None]
